FAERS Safety Report 8000435-4 (Version None)
Quarter: 2011Q4

REPORT INFORMATION
  Report Type: 
  Country: None (occurrence: None)
  Receive Date: 20111222
  Receipt Date: 20110415
  Transmission Date: 20120403
  Serious: No
  Sender: FDA-Public Use
  Company Number: US-BRISTOL-MYERS SQUIBB COMPANY-15678105

PATIENT
  Age: 71 Year
  Sex: Female

DRUGS (6)
  1. PRAVACHOL [Suspect]
  2. LISINOPRIL [Concomitant]
  3. PLAVIX [Suspect]
     Indication: TRANSIENT ISCHAEMIC ATTACK
     Dates: start: 20100901
  4. ASPIRIN [Concomitant]
  5. ATENOLOL [Concomitant]
  6. NORVASC [Concomitant]

REACTIONS (3)
  - EPISTAXIS [None]
  - CONTUSION [None]
  - GINGIVAL BLEEDING [None]
